FAERS Safety Report 25469549 (Version 1)
Quarter: 2025Q2

REPORT INFORMATION
  Report Type: Spontaneous
  Country: US (occurrence: None)
  Receive Date: 20250623
  Receipt Date: 20250623
  Transmission Date: 20250717
  Serious: Yes (Hospitalization)
  Sender: FDA-CTU
  Company Number: None

PATIENT
  Age: 61 Year
  Sex: Female

DRUGS (1)
  1. BOTOX [Suspect]
     Active Substance: ONABOTULINUMTOXINA
     Indication: Neurogenic bladder
     Route: 058
     Dates: start: 20250609, end: 20250609

REACTIONS (3)
  - Eyelid ptosis [None]
  - Dysarthria [None]
  - Muscular weakness [None]

NARRATIVE: CASE EVENT DATE: 20250609
